FAERS Safety Report 15710116 (Version 2)
Quarter: 2023Q2

REPORT INFORMATION
  Report Type: Spontaneous
  Country: DE (occurrence: DE)
  Receive Date: 20181211
  Receipt Date: 20230622
  Transmission Date: 20230722
  Serious: Yes (Life-Threatening, Other)
  Sender: FDA-Public Use
  Company Number: DE-DENTSPLY-2018SCDP000523

PATIENT
  Age: 86 Year
  Sex: Female
  Weight: 56 kg

DRUGS (47)
  1. XYLOCAINE [Suspect]
     Active Substance: LIDOCAINE HYDROCHLORIDE
     Indication: Local anaesthesia
     Dosage: UNK DOSE OF XYLOCAINE SOLUTION FOR INJECTION
     Route: 058
     Dates: start: 20000913, end: 20000913
  2. LIDOCAINE [Suspect]
     Active Substance: LIDOCAINE
     Indication: Local anaesthesia
     Dosage: UNK
     Route: 058
     Dates: start: 20000913, end: 20000913
  3. DIAZEPAM [Suspect]
     Active Substance: DIAZEPAM
     Indication: Sedation
     Dosage: UNK
     Route: 042
     Dates: start: 20000913, end: 20000913
  4. VIOXX [Suspect]
     Active Substance: ROFECOXIB
     Indication: Rheumatic disorder
     Dosage: 25 MILLIGRAM, QD
     Route: 048
     Dates: start: 20000907, end: 20000917
  5. CLONIDINE [Suspect]
     Active Substance: CLONIDINE
     Indication: Coronary artery disease
     Dosage: UNK
     Route: 042
     Dates: start: 20000913, end: 20000913
  6. ASPIRIN [Suspect]
     Active Substance: ASPIRIN
     Indication: Coagulopathy
     Dosage: 100 MG, QD (CUMULATIVE DOSE: 800 MG)
     Route: 048
     Dates: start: 20000914, end: 20000917
  7. ASPIRIN [Suspect]
     Active Substance: ASPIRIN
     Dosage: 100 MG, QD (CUMULATIVE DOSE: 800 MG)
     Route: 048
     Dates: start: 20000828, end: 20000831
  8. LORMETAZEPAM [Suspect]
     Active Substance: LORMETAZEPAM
     Indication: Sedation
     Dosage: 2 DOSAGE FORM, QD NOCTAMID SUSPENSION AEROSOL
     Route: 048
     Dates: start: 20000913, end: 20000913
  9. GLYBURIDE [Suspect]
     Active Substance: GLYBURIDE
     Indication: Diabetes mellitus
     Dosage: 3 DOSAGE FORM
     Route: 048
     Dates: start: 20000820, end: 20000917
  10. NOREPINEPHRINE [Suspect]
     Active Substance: NOREPINEPHRINE
     Indication: Coronary artery disease
     Dosage: UNK
     Route: 042
     Dates: start: 20000913, end: 20000913
  11. NOVALGIN (METAMIZOLE SODIUM) [Suspect]
     Active Substance: METAMIZOLE SODIUM
     Indication: Pain
     Dosage: 20 DROP, QD (GTT) FOR 4 WEEKS (CUMULATIVE DOSE: 560 DROPS)
     Route: 048
     Dates: start: 20000820, end: 20000917
  12. NOVALGIN (METAMIZOLE SODIUM) [Suspect]
     Active Substance: METAMIZOLE SODIUM
     Indication: General symptom
  13. PLAVIX [Suspect]
     Active Substance: CLOPIDOGREL BISULFATE
     Indication: Coagulopathy
     Dosage: 75 MILLIGRAM, QD (CUMULATIVE DOSE: 375 MG)
     Route: 048
     Dates: start: 20000913, end: 20000917
  14. PLAVIX [Suspect]
     Active Substance: CLOPIDOGREL BISULFATE
     Indication: Thrombosis prophylaxis
  15. CLEMASTINE FUMARATE [Suspect]
     Active Substance: CLEMASTINE FUMARATE
     Indication: Pemphigoid
     Dosage: 4 DOSAGE FORM OF TAVEGIL TABLET
     Route: 048
     Dates: start: 20000820, end: 20000828
  16. CLEMASTINE FUMARATE [Suspect]
     Active Substance: CLEMASTINE FUMARATE
     Dosage: 2 DOSAGE FORM, QD TAVEGIL TABLET
     Route: 048
     Dates: start: 20000820, end: 20000828
  17. OMEPRAZOLE MAGNESIUM [Suspect]
     Active Substance: OMEPRAZOLE MAGNESIUM
     Indication: Prophylaxis against gastrointestinal ulcer
     Dosage: 20 MILLIGRAM, QD (CUMULATIVE DOSE: 580 MG)
     Route: 048
     Dates: start: 20000820, end: 20000917
  18. PREDNISOLONE [Suspect]
     Active Substance: PREDNISOLONE
     Indication: Dermatitis bullous
     Dosage: 40 MILLIGRAM, QD (CUMULATIVE DOSE: 1740 MG)
     Route: 048
  19. PREDNISOLONE [Suspect]
     Active Substance: PREDNISOLONE
     Indication: Pemphigoid
     Dosage: 80 MILLIGRAM, QD  (CUMULATIVE DOSE: 1740 MG)
     Route: 048
  20. PREDNISOLONE [Suspect]
     Active Substance: PREDNISOLONE
     Dosage: 50 MILLIGRAM, QD (CUMULATIVE DOSE: 1740 MG)
     Route: 065
  21. PREDNISOLONE [Suspect]
     Active Substance: PREDNISOLONE
     Dosage: 60 MILLIGRAM, QD (CUMULATIVE DOSE: 1740 MG)
     Route: 048
     Dates: start: 20000820, end: 20000917
  22. ASPIRIN [Suspect]
     Active Substance: ASPIRIN
     Indication: Coagulopathy
     Dosage: 100 MILLIGRAM, QD (CUMULATIVE DOSE: 800 MG)
     Route: 048
     Dates: start: 20000914, end: 20000917
  23. ASPIRIN [Suspect]
     Active Substance: ASPIRIN
     Dosage: 100 MILLIGRAM, QD (CUMULATIVE DOSE: 800 MG)
     Route: 048
     Dates: start: 20000828, end: 20000831
  24. TORSEMIDE [Suspect]
     Active Substance: TORSEMIDE
     Indication: Cardiac failure
     Dosage: 5 MILLIGRAM, QD (CUMULATIVE DOSE: 145 MG)
     Route: 048
     Dates: start: 20000820, end: 20000917
  25. ISOSORBIDE MONONITRATE [Suspect]
     Active Substance: ISOSORBIDE MONONITRATE
     Indication: Angina pectoris
     Dosage: 1 DOSAGE FORM, QD
     Route: 048
     Dates: start: 20000820, end: 20000917
  26. ESTRIOL [Suspect]
     Active Substance: ESTRIOL
     Indication: Vulvovaginal disorder
     Dosage: 1 DOSAGE FORM, QD (CUMULATIVE DOSE; 18 DF)
     Route: 067
     Dates: start: 20000820, end: 20000906
  27. INSULIN NOS [Suspect]
     Active Substance: INSULIN NOS
     Indication: Diabetes mellitus
     Dosage: UNK
     Route: 042
     Dates: start: 20000913, end: 20000913
  28. INSULIN NOS [Suspect]
     Active Substance: INSULIN NOS
     Dosage: UNK
     Route: 058
     Dates: start: 20000820, end: 20000917
  29. MOLSIDOMINE [Suspect]
     Active Substance: MOLSIDOMINE
     Indication: Coronary artery disease
     Dosage: 8 MILLIGRAM, QD (CUMULATIVE DOSE: 208 MG)
     Route: 048
     Dates: start: 20000820, end: 20000914
  30. DALTEPARIN SODIUM [Suspect]
     Active Substance: DALTEPARIN SODIUM
     Indication: Coagulopathy
     Dosage: UNK
     Route: 058
     Dates: start: 20000820, end: 20000917
  31. DALTEPARIN SODIUM [Suspect]
     Active Substance: DALTEPARIN SODIUM
     Indication: Thrombosis prophylaxis
  32. FENTANYL [Suspect]
     Active Substance: FENTANYL
     Indication: Pain
     Dosage: 50 MICROGRAM PER 1 HOUR (50 MCG, MCGS PER INHALATION, 72 - EVERY HOUR) (CUMULATIVE DOSE; 10 DF)
     Route: 062
  33. FENTANYL [Suspect]
     Active Substance: FENTANYL
     Dosage: 1 DOSAGE FORM PER 3 DAYS
     Route: 062
     Dates: start: 20000820, end: 20000916
  34. FENTANYL [Suspect]
     Active Substance: FENTANYL
     Dosage: 125 MICROGRAM PER HOUR (125 MCGS PER INHALATION) (CUMULATIVE DOSE; 10 DF)
     Route: 062
  35. FENTANYL [Suspect]
     Active Substance: FENTANYL
     Dosage: 150 MICROGRAM PER HOUR (150 MCGS PER INHALATION, 72 - EVERY HOUR) (CUMULATIVE DOSE; 10 DF)
     Route: 062
  36. DEXTROSE [Concomitant]
     Active Substance: DEXTROSE\DEXTROSE MONOHYDRATE
     Indication: Cardiovascular disorder
     Dosage: UNK DOSE OF 5% GLUCOSE
     Route: 042
     Dates: start: 20000913, end: 20000913
  37. DEXTROSE [Concomitant]
     Active Substance: DEXTROSE\DEXTROSE MONOHYDRATE
     Indication: Diabetes mellitus
  38. COTRIM [Concomitant]
     Active Substance: SULFAMETHOXAZOLE\TRIMETHOPRIM
     Indication: Urinary tract infection
     Dosage: 1 DOSAGE FORM, QD (CUMULATIVE DOSE: 2 DF)
     Route: 048
     Dates: start: 20000916, end: 20000917
  39. CALCIUM [Concomitant]
     Active Substance: CALCIUM
     Indication: Osteoporosis
     Dosage: 1 DOSAGE FORM, QD (CUMULATIVE DOSE: 29 DF)
     Route: 048
     Dates: start: 20000820, end: 20000917
  40. RINGER^S SOLUTION [CALCIUM CHLORIDE;POTASSIUM CHLORIDE] [Concomitant]
     Indication: Electrolyte depletion
     Dosage: UNK DOSE OF RINGER^S IRRIGATION
     Route: 042
     Dates: start: 20000913, end: 20000914
  41. OMEPRAZOLE [Concomitant]
     Active Substance: OMEPRAZOLE
     Indication: Prophylaxis against gastrointestinal ulcer
     Dosage: 20 MILLIGRAM, QD
     Route: 048
     Dates: start: 20000820, end: 20000917
  42. MOLSIDOMINE [Concomitant]
     Active Substance: MOLSIDOMINE
     Indication: Coronary artery disease
     Dosage: 1 DOSAGE FORM, QD
     Route: 048
     Dates: start: 20000820, end: 20000914
  43. POTASSIUM CHLORIDE [Concomitant]
     Active Substance: POTASSIUM CHLORIDE
     Indication: Electrolyte depletion
     Dosage: UNK
     Route: 042
     Dates: start: 20000913, end: 20000914
  44. POTASSIUM CHLORIDE [Concomitant]
     Active Substance: POTASSIUM CHLORIDE
     Indication: Fluid retention
     Dosage: UNK
  45. OMEPRAZOLE [Concomitant]
     Active Substance: OMEPRAZOLE
     Indication: Prophylaxis against gastrointestinal ulcer
     Dosage: 20 MILLIGRAM, QD (CUMULATIVE DOSE: 580 MG)
     Route: 048
     Dates: start: 20000820, end: 20000917
  46. CALCIUM CHLORIDE [Concomitant]
     Active Substance: CALCIUM CHLORIDE
     Indication: Fluid retention
     Dosage: UNK
     Route: 042
     Dates: start: 20000913, end: 20000914
  47. CALCIUM CHLORIDE [Concomitant]
     Active Substance: CALCIUM CHLORIDE
     Indication: Electrolyte depletion

REACTIONS (6)
  - Mucosal erosion [Recovered/Resolved]
  - Blister [Recovered/Resolved]
  - Mouth ulceration [Recovered/Resolved]
  - Toxic epidermal necrolysis [Recovered/Resolved]
  - Erythema [Recovered/Resolved]
  - Conjunctivitis [Recovered/Resolved]

NARRATIVE: CASE EVENT DATE: 20000916
